FAERS Safety Report 19709267 (Version 2)
Quarter: 2021Q3

REPORT INFORMATION
  Report Type: Report from Study
  Country: US (occurrence: US)
  Receive Date: 20210817
  Receipt Date: 20210920
  Transmission Date: 20211014
  Serious: No
  Sender: FDA-Public Use
  Company Number: US-EMD SERONO-9258117

PATIENT
  Sex: Female
  Weight: 111 kg

DRUGS (2)
  1. MAVENCLAD [Suspect]
     Active Substance: CLADRIBINE
     Dosage: YEAR ONE MONTH TWO THERAPY: 10 MG TWO TIMES A DAY FOR 5 DAYS
     Route: 048
  2. MAVENCLAD [Suspect]
     Active Substance: CLADRIBINE
     Indication: MULTIPLE SCLEROSIS
     Dosage: YEAR ONE MONTH ONE THERAPY: 10 MG TWO TIMES A DAY FOR 5 DAYS.
     Route: 048
     Dates: start: 20200921

REACTIONS (2)
  - Decubitus ulcer [Unknown]
  - Urinary tract infection [Unknown]
